FAERS Safety Report 6252659-4 (Version None)
Quarter: 2009Q3

REPORT INFORMATION
  Report Type: 
  Country: None (occurrence: None)
  Receive Date: 20090701
  Receipt Date: 20090619
  Transmission Date: 20100115
  Serious: Yes (Other)
  Sender: FDA-Public Use
  Company Number: PHHY2009ES24586

PATIENT
  Age: 60 Year
  Sex: Female

DRUGS (3)
  1. TRILEPTAL [Suspect]
     Indication: TRIGEMINAL NEURALGIA
     Dosage: 600 MG, BID
     Route: 048
     Dates: start: 20090430, end: 20090501
  2. PRETERAX [Interacting]
     Indication: HYPERTENSION
     Dosage: UNK
     Dates: start: 20080317
  3. MASTICAL [Concomitant]
     Dosage: UNK
     Dates: start: 20090317

REACTIONS (2)
  - DRUG INTERACTION [None]
  - HYPONATRAEMIA [None]
